FAERS Safety Report 4797337-3 (Version None)
Quarter: 2005Q4

REPORT INFORMATION
  Report Type: 
  Country: None (occurrence: None)
  Receive Date: 20051013
  Receipt Date: 20051004
  Transmission Date: 20060501
  Serious: Yes (Other)
  Sender: FDA-Public Use
  Company Number: 2005AP05288

PATIENT
  Sex: Male

DRUGS (5)
  1. SPLENDIL [Suspect]
     Route: 048
  2. URINORM [Concomitant]
     Route: 048
  3. ALLOPURINOL [Concomitant]
     Route: 048
  4. NU-LOTAN [Concomitant]
     Route: 048
  5. KALIMATE [Concomitant]
     Route: 048

REACTIONS (2)
  - ATRIAL FIBRILLATION [None]
  - BLOOD CREATININE INCREASED [None]
